FAERS Safety Report 6901977-2 (Version None)
Quarter: 2010Q3

REPORT INFORMATION
  Report Type: 
  Country: None (occurrence: None)
  Receive Date: 20100802
  Receipt Date: 20100802
  Transmission Date: 20110219
  Serious: Yes (Life-Threatening, Other)
  Sender: FDA-Public Use
  Company Number: None

PATIENT
  Age: 53 Year
  Sex: Male
  Weight: 90.7194 kg

DRUGS (1)
  1. LEVAQUIN 500MG JASSEN [Suspect]
     Dosage: 7   1 TABLET PER-DAY PO
     Route: 048
     Dates: start: 20100727, end: 20100729

REACTIONS (9)
  - ASTHENIA [None]
  - BLINDNESS [None]
  - BLOOD PRESSURE DECREASED [None]
  - CONVULSION [None]
  - DIZZINESS [None]
  - FALL [None]
  - HEAD INJURY [None]
  - MUSCULAR WEAKNESS [None]
  - RENAL FAILURE [None]
